FAERS Safety Report 4484755-6 (Version None)
Quarter: 2004Q4

REPORT INFORMATION
  Report Type: 
  Country: None (occurrence: None)
  Receive Date: 20041025
  Receipt Date: 20041018
  Transmission Date: 20050328
  Serious: Yes (Hospitalization)
  Sender: FDA-Public Use
  Company Number: DE-MERCK-0410DEU00529

PATIENT
  Age: 59 Year
  Sex: Female

DRUGS (2)
  1. VIOXX [Suspect]
     Indication: PAIN
     Route: 048
     Dates: start: 20040701, end: 20040701
  2. VIOXX [Suspect]
     Indication: MUSCULOSKELETAL PAIN
     Route: 048
     Dates: start: 20040701, end: 20040701

REACTIONS (4)
  - DIARRHOEA [None]
  - GASTRITIS [None]
  - HYPERHIDROSIS [None]
  - NAUSEA [None]
